FAERS Safety Report 7734109-1 (Version None)
Quarter: 2011Q3

REPORT INFORMATION
  Report Type: 
  Country: None (occurrence: None)
  Receive Date: 20110907
  Receipt Date: 20110827
  Transmission Date: 20111222
  Serious: Yes (Hospitalization, Disabling)
  Sender: FDA-Public Use
  Company Number: HR-ROCHE-674413

PATIENT
  Sex: Male
  Weight: 67.9 kg

DRUGS (19)
  1. ISOSORBIDE MONONITRATE [Concomitant]
     Dates: start: 20070730
  2. CALCITRIOL [Concomitant]
     Dates: start: 20080516
  3. FOLIC ACID [Concomitant]
     Dates: start: 20090814
  4. LACIDIPINE [Concomitant]
     Dates: start: 20100104
  5. LACIDIPINE [Concomitant]
     Dates: start: 20100830
  6. METHOXY POLYETHYLENE GLYCOL-EPOETIN BETA [Suspect]
     Dosage: LAST DOSE PRIOR TO SAE: 07 DECEMBER 2009
     Route: 058
  7. METHOXY POLYETHYLENE GLYCOL-EPOETIN BETA [Suspect]
     Dosage: DATE OF LAST DOSE PRIOR TO SAE: 08 OCTOBER 2010
     Route: 058
  8. CALCIUM CARBONATE [Concomitant]
     Dates: start: 20080630
  9. GLIQUIDONE [Concomitant]
     Dates: start: 20091228
  10. METHOXY POLYETHYLENE GLYCOL-EPOETIN BETA [Suspect]
     Route: 058
     Dates: start: 20090608
  11. METHOXY POLYETHYLENE GLYCOL-EPOETIN BETA [Suspect]
     Dosage: LAST DOSE PRIOR TO EVENT: 09 JULY 2010
     Route: 058
  12. CARVEDILOL [Concomitant]
     Dates: start: 20090531
  13. AMLODIPINE [Concomitant]
     Dates: start: 20071005
  14. SIMVASTATIN [Concomitant]
     Dates: start: 20100625
  15. FUROSEMIDE [Concomitant]
     Dates: start: 20100101
  16. LISINOPRIL [Concomitant]
     Dates: start: 20071005
  17. PANTOPRAZOLE [Concomitant]
     Dates: start: 20090123
  18. GLIQUIDONE [Concomitant]
     Dates: start: 20070915
  19. ACETYLSALICYLIC ACID SRT [Concomitant]
     Dates: start: 20100108

REACTIONS (7)
  - DEVICE MALFUNCTION [None]
  - TRANSIENT ISCHAEMIC ATTACK [None]
  - ISCHAEMIC STROKE [None]
  - CAROTID ARTERY STENOSIS [None]
  - ARTERIOVENOUS FISTULA THROMBOSIS [None]
  - FEMORAL ARTERY OCCLUSION [None]
  - PERIPHERAL ARTERIAL OCCLUSIVE DISEASE [None]
